FAERS Safety Report 20660047 (Version 1)
Quarter: 2022Q1

REPORT INFORMATION
  Report Type: Spontaneous
  Country: CA (occurrence: CA)
  Receive Date: 20220331
  Receipt Date: 20220331
  Transmission Date: 20220424
  Serious: Yes (Hospitalization, Other)
  Sender: FDA-Public Use
  Company Number: CA-BAYER-2022A046503

PATIENT
  Sex: Female

DRUGS (1)
  1. CIPROFLOXACIN [Suspect]
     Active Substance: CIPROFLOXACIN
     Indication: Urinary tract infection

REACTIONS (7)
  - Nervous system disorder [Unknown]
  - Ligament disorder [Unknown]
  - Tendon rupture [Unknown]
  - Haemorrhage [Unknown]
  - Thrombosis [Unknown]
  - Pain [Unknown]
  - Impaired work ability [Unknown]
